FAERS Safety Report 20665879 (Version 2)
Quarter: 2022Q2

REPORT INFORMATION
  Report Type: Report from Study
  Country: US (occurrence: US)
  Receive Date: 20220402
  Receipt Date: 20220523
  Transmission Date: 20220721
  Serious: Yes (Other)
  Sender: FDA-Public Use
  Company Number: US-TEVA-2022-US-2015799

PATIENT
  Age: 21 Year
  Sex: Female

DRUGS (2)
  1. CLARAVIS [Suspect]
     Active Substance: ISOTRETINOIN
     Dosage: 30 MG
     Route: 065
  2. CLARAVIS [Suspect]
     Active Substance: ISOTRETINOIN
     Dosage: 40 MG
     Route: 065

REACTIONS (1)
  - Depression [Unknown]

NARRATIVE: CASE EVENT DATE: 20220209
